FAERS Safety Report 7674417-6 (Version None)
Quarter: 2011Q3

REPORT INFORMATION
  Report Type: 
  Country: None (occurrence: None)
  Receive Date: 20110810
  Receipt Date: 20110804
  Transmission Date: 20111222
  Serious: Yes (Other)
  Sender: FDA-Public Use
  Company Number: CA-PFIZER INC-2011143641

PATIENT
  Age: 67 Year
  Sex: Male

DRUGS (1)
  1. XALATAN [Suspect]
     Indication: GLAUCOMA
     Dosage: 1 DROP IN BOTH EYES DAILY
     Route: 047
     Dates: start: 20090101

REACTIONS (7)
  - GLAUCOMA [None]
  - VISION BLURRED [None]
  - DRY EYE [None]
  - CATARACT [None]
  - GROWTH OF EYELASHES [None]
  - CATARACT OPERATION [None]
  - IRIS HYPERPIGMENTATION [None]
